FAERS Safety Report 8574537 (Version 3)
Quarter: 2012Q4

REPORT INFORMATION
  Report Type: Spontaneous
  Country: JP (occurrence: None)
  Receive Date: 20120516
  Receipt Date: 20121108
  Transmission Date: 20130627
  Serious: Yes (Death, Life-Threatening, Hospitalization)
  Sender: FDA-Public Use
  Company Number: TCI2012A02323

PATIENT
  Age: 67 Year
  Sex: Male

DRUGS (8)
  1. LANSOPRAZOLE [Suspect]
     Indication: GASTRITIS
     Dosage: 30 MG (30 MG, 1 IN 1 D) PER ORAL
     Route: 048
     Dates: start: 20120411, end: 20120417
  2. LANSOPRAZOLE [Suspect]
     Indication: GASTRIC ULCER
     Dosage: 30 MG (30 MG, 1 IN 1 D) PER ORAL
     Route: 048
     Dates: start: 20120411, end: 20120417
  3. LEVOFLOXACIN [Suspect]
     Indication: DIARRHOEA
     Dosage: PER ORAL
     Route: 048
     Dates: start: 20120411, end: 20120417
  4. OMEPRAZOLE/SODIUM BICARBONATE [Suspect]
     Indication: GASTRIC ULCER
     Dosage: 40MG (20MG, 2 IN 1 D); 40MG (20MG, 2 IN 1 D)
     Route: 042
     Dates: start: 20120423, end: 20120426
  5. OMEPRAZOLE/SODIUM BICARBONATE [Suspect]
     Indication: GASTRIC ULCER
     Dosage: 40MG (20MG, 2 IN 1 D); 40MG (20MG, 2 IN 1 D)
     Route: 042
     Dates: start: 20120502, end: 20120507
  6. BIO-THREE [Concomitant]
  7. FAMOTIDINE D (FAMOTIDINE) [Concomitant]
  8. ALLOPURINOL [Concomitant]

REACTIONS (18)
  - RENAL FAILURE ACUTE [None]
  - RENAL TUBULAR NECROSIS [None]
  - BLOOD CREATININE INCREASED [None]
  - DEHYDRATION [None]
  - ANURIA [None]
  - JAUNDICE CHOLESTATIC [None]
  - BLOOD BILIRUBIN INCREASED [None]
  - BILIRUBIN CONJUGATED INCREASED [None]
  - ASPARTATE AMINOTRANSFERASE INCREASED [None]
  - BLOOD ALKALINE PHOSPHATASE INCREASED [None]
  - ENTEROCOLITIS HAEMORRHAGIC [None]
  - DIARRHOEA [None]
  - HAEMATOCHEZIA [None]
  - HAEMODIALYSIS [None]
  - ANAEMIA [None]
  - DISEASE PROGRESSION [None]
  - GASTRIC ULCER HAEMORRHAGE [None]
  - DIABETIC COMPLICATION [None]
